FAERS Safety Report 7878330-0 (Version None)
Quarter: 2011Q4

REPORT INFORMATION
  Report Type: 
  Country: None (occurrence: None)
  Receive Date: 20111028
  Receipt Date: 20111024
  Transmission Date: 20120403
  Serious: Yes (Death)
  Sender: FDA-Public Use
  Company Number: 2011SP048436

PATIENT
  Age: 70 Year
  Sex: Male

DRUGS (6)
  1. BACTRIM [Concomitant]
  2. LASIX [Concomitant]
  3. SOLDESAM /00016002/ [Concomitant]
  4. LANSOPRAZOLE [Concomitant]
  5. TEMODAL [Suspect]
     Indication: GLIOBLASTOMA MULTIFORME
     Dosage: 130 MG;QD;PO
     Route: 048
     Dates: start: 20110906, end: 20110930
  6. TEMODAL [Suspect]

REACTIONS (4)
  - BONE MARROW TOXICITY [None]
  - FEBRILE BONE MARROW APLASIA [None]
  - HYPOTENSION [None]
  - GENERAL PHYSICAL HEALTH DETERIORATION [None]
